FAERS Safety Report 15714990 (Version 6)
Quarter: 2018Q4

REPORT INFORMATION
  Report Type: Spontaneous
  Country: JP (occurrence: JP)
  Receive Date: 20181212
  Receipt Date: 20181219
  Transmission Date: 20190205
  Serious: Yes (Hospitalization, Other)
  Sender: FDA-Public Use
  Company Number: PHHY2018JP176297

PATIENT
  Age: 76 Year
  Sex: Female

DRUGS (2)
  1. METHOTREXATE. [Suspect]
     Active Substance: METHOTREXATE
     Indication: RHEUMATOID ARTHRITIS
     Dosage: 8 MG, QW
     Route: 065
  2. PREDNISOLONE. [Concomitant]
     Active Substance: PREDNISOLONE
     Indication: RHEUMATOID ARTHRITIS
     Dosage: 7.5 MG, QD
     Route: 065

REACTIONS (7)
  - Erythema [Unknown]
  - Skin ulcer [Unknown]
  - Epstein-Barr virus associated lymphoproliferative disorder [Unknown]
  - B-cell lymphoma [Unknown]
  - Lymphoproliferative disorder [Unknown]
  - Nodule [Unknown]
  - Tissue infiltration [Unknown]
